FAERS Safety Report 8910940 (Version 1)
Quarter: 2012Q4

REPORT INFORMATION
  Report Type: 
  Country: HU (occurrence: HU)
  Receive Date: 20121116
  Receipt Date: 20121116
  Transmission Date: 20130627
  Serious: Yes (Hospitalization)
  Sender: FDA-Public Use
  Company Number: HU-ELI_LILLY_AND_COMPANY-HU201211003296

PATIENT
  Sex: Female
  Weight: 59 kg

DRUGS (2)
  1. RALOXIFENE HYDROCHLORIDE [Suspect]
     Dosage: 1 DF, qd
     Route: 048
     Dates: start: 1996, end: 2003
  2. CAVINTON [Concomitant]
     Dosage: UNK

REACTIONS (4)
  - Galactorrhoea [Unknown]
  - Asthma [Unknown]
  - Haemophilus infection [Unknown]
  - Osteoporosis postmenopausal [Unknown]
